FAERS Safety Report 26195084 (Version 1)
Quarter: 2025Q4

REPORT INFORMATION
  Report Type: Spontaneous
  Country: US (occurrence: US)
  Receive Date: 20251224
  Receipt Date: 20251224
  Transmission Date: 20260117
  Serious: No
  Sender: NOVARTIS
  Company Number: US-002147023-NVSC2025US196025

PATIENT
  Age: 66 Year
  Sex: Male

DRUGS (1)
  1. REMIBRUTINIB [Suspect]
     Active Substance: REMIBRUTINIB
     Indication: Chronic spontaneous urticaria
     Dosage: UNK UNK, BID
     Route: 048
     Dates: start: 20251115, end: 20251130

REACTIONS (1)
  - Disease recurrence [Unknown]
